FAERS Safety Report 7332368-0 (Version None)
Quarter: 2011Q1

REPORT INFORMATION
  Report Type: 
  Country: None (occurrence: None)
  Receive Date: 20110304
  Receipt Date: 20110303
  Transmission Date: 20110831
  Serious: Yes (Hospitalization)
  Sender: FDA-Public Use
  Company Number: B0629346A

PATIENT
  Sex: Male
  Weight: 65 kg

DRUGS (4)
  1. PAZOPANIB [Suspect]
     Indication: SARCOMA
     Dosage: 800MG PER DAY
     Route: 048
     Dates: start: 20100118
  2. STILNOX [Concomitant]
     Indication: INSOMNIA
     Dosage: 10MG PER DAY
     Route: 048
     Dates: start: 20090420
  3. NORSET [Concomitant]
     Indication: DEPRESSION
     Dosage: 15MG PER DAY
     Route: 048
     Dates: start: 20090922
  4. LOXEN [Concomitant]
     Dosage: 50MG TWICE PER DAY
     Route: 048
     Dates: start: 20100119

REACTIONS (8)
  - SEPSIS [None]
  - PYREXIA [None]
  - NAUSEA [None]
  - VOMITING [None]
  - HEPATOTOXICITY [None]
  - PSEUDOMONAS INFECTION [None]
  - DIARRHOEA [None]
  - DRUG INEFFECTIVE [None]
